FAERS Safety Report 8458099-1 (Version None)
Quarter: 2012Q2

REPORT INFORMATION
  Report Type: 
  Country: None (occurrence: None)
  Receive Date: 20120622
  Receipt Date: 20120612
  Transmission Date: 20120825
  Serious: Yes (Hospitalization)
  Sender: FDA-Public Use
  Company Number: US-JNJFOC-20120515465

PATIENT
  Sex: Female
  Weight: 44.91 kg

DRUGS (25)
  1. ETODOLAC [Concomitant]
     Indication: ARTHRITIS
     Route: 065
  2. GABAPENTIN [Concomitant]
     Indication: ARTHRITIS
     Route: 065
  3. ONDANSETRON [Concomitant]
     Indication: NAUSEA
     Route: 065
  4. ALL OTHER THERAPEUTICS [Concomitant]
     Route: 065
  5. REMICADE [Suspect]
     Indication: CROHN'S DISEASE
     Route: 042
     Dates: start: 20120531
  6. LEVOTHYROXINE [Concomitant]
     Indication: THYROID DISORDER
     Route: 065
  7. ESTRADIOL [Concomitant]
     Dosage: 1/2 TABLET A DAY
     Route: 065
  8. REMICADE [Suspect]
     Route: 042
     Dates: start: 20120509, end: 20120501
  9. LEVAQUIN [Concomitant]
     Indication: LUNG ABSCESS
     Route: 065
  10. BISOPROLOL FUMARATE [Concomitant]
     Indication: HEART RATE INCREASED
     Dosage: 1/2 TABLET ONCE DAILY
     Route: 065
  11. FUROSEMIDE [Concomitant]
     Indication: OEDEMA PERIPHERAL
     Route: 065
  12. PREDNISONE TAB [Concomitant]
     Indication: CROHN'S DISEASE
     Route: 065
  13. LOPERAMIDE [Concomitant]
     Indication: DIARRHOEA
     Route: 065
  14. ONDANSETRON [Concomitant]
     Indication: VOMITING
     Route: 065
  15. CALCIUM [Concomitant]
     Route: 065
  16. VITAMIN D [Concomitant]
     Route: 065
  17. LEVAQUIN [Concomitant]
     Indication: PNEUMONIA
     Route: 065
  18. PRAMIPEXOLE [Concomitant]
     Indication: RESTLESS LEGS SYNDROME
     Route: 065
  19. STEROIDS NOS [Concomitant]
     Route: 065
     Dates: start: 20120101
  20. PROBIOTIC [Concomitant]
     Route: 065
  21. CLOTRIMAZOLE [Concomitant]
     Indication: CANDIDIASIS
     Route: 065
  22. BETA-BLOCKER, NOS [Concomitant]
     Route: 065
  23. VITAMIN B-12 [Concomitant]
     Route: 065
  24. MUPIROCIN [Concomitant]
     Indication: CANDIDIASIS
     Route: 061
  25. PANTOPRAZOLE [Concomitant]
     Indication: GASTROOESOPHAGEAL REFLUX DISEASE
     Route: 065

REACTIONS (4)
  - DEHYDRATION [None]
  - LUNG ABSCESS [None]
  - HAEMOGLOBIN DECREASED [None]
  - PLEURAL EFFUSION [None]
